FAERS Safety Report 9091526 (Version 1)
Quarter: 2013Q1

REPORT INFORMATION
  Report Type: Report from Study
  Country: DE (occurrence: DE)
  Receive Date: 20130201
  Receipt Date: 20130201
  Transmission Date: 20140127
  Serious: Yes (Hospitalization)
  Sender: FDA-Public Use
  Company Number: DE-ASTELLAS-2013EU000691

PATIENT
  Age: 59 Year
  Sex: Male
  Weight: 103 kg

DRUGS (12)
  1. TACROLIMUS SYSTEMIC [Suspect]
     Indication: LIVER TRANSPLANT
     Dosage: 2 MG, UID/QD
     Route: 048
  2. SIROLIMUS [Suspect]
     Indication: LIVER TRANSPLANT
     Dosage: UNK
     Route: 065
     Dates: start: 20071001, end: 20071025
  3. CELLCEPT                           /01275102/ [Concomitant]
     Indication: IMMUNOSUPPRESSION
     Dosage: UNK
     Route: 065
  4. TOREM                              /01036501/ [Concomitant]
     Indication: POLYURIA
     Dosage: UNK
     Route: 065
  5. CONCOR [Concomitant]
     Indication: HYPERTENSION
     Dosage: UNK
     Route: 065
  6. RAMIPRIL [Concomitant]
     Indication: HYPERTENSION
     Dosage: UNK
     Route: 065
  7. LYRICA [Concomitant]
     Indication: PROPHYLAXIS
     Dosage: UNK
     Route: 065
  8. KREON                              /00014701/ [Concomitant]
     Indication: PROPHYLAXIS
     Dosage: UNK
     Route: 065
  9. NOVALGIN                           /06276704/ [Concomitant]
     Indication: PROPHYLAXIS
     Dosage: UNK
     Route: 065
  10. PANTOPRAZOLE [Concomitant]
     Indication: PROPHYLAXIS
     Dosage: UNK
     Route: 065
  11. ALLOPURINOL [Concomitant]
     Indication: HYPERTENSION
     Dosage: UNK
     Route: 065
  12. PARACETAMOL [Concomitant]
     Dosage: UNK
     Route: 065

REACTIONS (2)
  - Prostatitis [Not Recovered/Not Resolved]
  - Intervertebral discitis [Not Recovered/Not Resolved]
